FAERS Safety Report 6866362-0 (Version None)
Quarter: 2010Q2

REPORT INFORMATION
  Report Type: 
  Country: None (occurrence: None)
  Receive Date: 20100610
  Receipt Date: 20100225
  Transmission Date: 20101027
  Serious: Yes (Other)
  Sender: FDA-Public Use
  Company Number: 2010SP012363

PATIENT
  Age: 40 Year
  Sex: Male

DRUGS (3)
  1. SAPHRIS [Suspect]
     Indication: BIPOLAR DISORDER
     Dates: start: 20100101, end: 20100201
  2. DEPAKOTE [Concomitant]
  3. PROZAC [Concomitant]

REACTIONS (2)
  - AKATHISIA [None]
  - NERVOUSNESS [None]
